FAERS Safety Report 19413423 (Version 1)
Quarter: 2021Q2

REPORT INFORMATION
  Report Type: Report from Study
  Country: DE (occurrence: DE)
  Receive Date: 20210614
  Receipt Date: 20210614
  Transmission Date: 20210717
  Serious: Yes (Other)
  Sender: FDA-Public Use
  Company Number: DE-MYLANLABS-2021M1034311

PATIENT

DRUGS (13)
  1. CLADRIBINE. [Suspect]
     Active Substance: CLADRIBINE
     Indication: T-CELL PROLYMPHOCYTIC LEUKAEMIA
     Dosage: UNK, CYCLE, TWO CYCLE
  2. ALEMTUZUMAB [Suspect]
     Active Substance: ALEMTUZUMAB
     Dosage: 10MG/48H
     Route: 042
  3. BENDAMUSTINE HYDROCHLORIDE. [Suspect]
     Active Substance: BENDAMUSTINE HYDROCHLORIDE
     Indication: T-CELL PROLYMPHOCYTIC LEUKAEMIA
     Dosage: 90 MILLIGRAM/SQ. METER, CYCLE
     Route: 042
  4. ALEMTUZUMAB [Suspect]
     Active Substance: ALEMTUZUMAB
     Dosage: FOLLOWED BY 30MG/48H WEEKLY
     Route: 042
  5. FLUDARABINE [Concomitant]
     Active Substance: FLUDARABINE PHOSPHATE
     Indication: BONE MARROW CONDITIONING REGIMEN
     Dosage: FC REGIMEN
     Route: 065
  6. CYCLOSPORINE. [Concomitant]
     Active Substance: CYCLOSPORINE
     Indication: PROPHYLAXIS AGAINST GRAFT VERSUS HOST DISEASE
     Dosage: AT A TARGET LEVEL OF 200 NG/ML/DAY FOR 100 DAYS
     Route: 065
  7. ALEMTUZUMAB [Suspect]
     Active Substance: ALEMTUZUMAB
     Dosage: UNK UNK, CYCLE,TWO CYCLES
     Route: 042
  8. MYCOPHENOLATE MOFETIL. [Concomitant]
     Active Substance: MYCOPHENOLATE MOFETIL
     Indication: PROPHYLAXIS AGAINST GRAFT VERSUS HOST DISEASE
     Dosage: UNK, QD
  9. ALEMTUZUMAB [Suspect]
     Active Substance: ALEMTUZUMAB
     Indication: T-CELL PROLYMPHOCYTIC LEUKAEMIA
     Dosage: 3MG/48H
     Route: 042
  10. ALEMTUZUMAB [Suspect]
     Active Substance: ALEMTUZUMAB
     Dosage: 30MG/48H
     Route: 042
  11. CYCLOPHOSPHAMIDE. [Concomitant]
     Active Substance: CYCLOPHOSPHAMIDE
     Indication: BONE MARROW CONDITIONING REGIMEN
     Dosage: FC REGIMEN
     Route: 065
  12. PEG/L?ASPARAGINASE [Suspect]
     Active Substance: PEGASPARGASE
     Indication: T-CELL PROLYMPHOCYTIC LEUKAEMIA
     Dosage: 1000 IU/M2 ON DAY 1
     Route: 042
  13. PANOBINOSTAT [Suspect]
     Active Substance: PANOBINOSTAT
     Indication: T-CELL PROLYMPHOCYTIC LEUKAEMIA
     Dosage: UNK UNK, CYCLE, TWO CYCLES
     Route: 042

REACTIONS (1)
  - Drug ineffective [Unknown]
